FAERS Safety Report 7963789-0 (Version None)
Quarter: 2011Q4

REPORT INFORMATION
  Report Type: 
  Country: None (occurrence: None)
  Receive Date: 20111208
  Receipt Date: 20111102
  Transmission Date: 20120403
  Serious: No
  Sender: FDA-Public Use
  Company Number: US-BAYER-2011-107134

PATIENT
  Age: 63 Year
  Sex: Male
  Weight: 75 kg

DRUGS (2)
  1. ALEVE (CAPLET) [Suspect]
     Indication: PAIN
     Dosage: 20 COUNT
     Route: 048
     Dates: end: 20111102
  2. ATIVAN [Concomitant]

REACTIONS (3)
  - DYSPEPSIA [None]
  - CHEST DISCOMFORT [None]
  - ABDOMINAL PAIN UPPER [None]
